FAERS Safety Report 9528023 (Version 2)
Quarter: 2020Q3

REPORT INFORMATION
  Report Type: Report from Study
  Country: US (occurrence: US)
  Receive Date: 20130917
  Receipt Date: 20140829
  Transmission Date: 20201105
  Serious: Yes (Other)
  Sender: FDA-Public Use
  Company Number: US-JNJFOC-20130906505

PATIENT
  Age: 6 Year
  Sex: Female
  Weight: 17.4 kg

DRUGS (7)
  1. PROPULSID [Suspect]
     Active Substance: CISAPRIDE
     Indication: GASTROOESOPHAGEAL REFLUX DISEASE
     Route: 050
     Dates: start: 20131122
  2. BICITRA [Concomitant]
     Active Substance: CITRIC ACID, 1-STEARYL ESTER\SODIUM CITRATE
     Indication: ACIDOSIS
     Route: 065
     Dates: start: 20121008
  3. PROPULSID [Suspect]
     Active Substance: CISAPRIDE
     Indication: GASTROINTESTINAL MOTILITY DISORDER
     Dosage: VIA GASTROSTOMY TUBE (G?TUBE)
     Route: 050
     Dates: start: 20120228, end: 20130909
  4. PROPULSID [Suspect]
     Active Substance: CISAPRIDE
     Indication: GASTROOESOPHAGEAL REFLUX DISEASE
     Dosage: VIA GASTROSTOMY TUBE (G?TUBE)
     Route: 050
     Dates: start: 20120228, end: 20130909
  5. TUMS [Concomitant]
     Active Substance: CALCIUM CARBONATE
     Indication: GASTROOESOPHAGEAL REFLUX DISEASE
     Route: 065
     Dates: start: 20120601
  6. PROPULSID [Suspect]
     Active Substance: CISAPRIDE
     Indication: GASTROINTESTINAL MOTILITY DISORDER
     Route: 050
     Dates: start: 20131122
  7. MIRALAX [Concomitant]
     Active Substance: POLYETHYLENE GLYCOL 3350
     Indication: GASTROINTESTINAL STOMA COMPLICATION
     Route: 048
     Dates: start: 20130424

REACTIONS (1)
  - Electrocardiogram QT prolonged [Recovered/Resolved]

NARRATIVE: CASE EVENT DATE: 20130909
